FAERS Safety Report 17624336 (Version 1)
Quarter: 2020Q2

REPORT INFORMATION
  Report Type: Spontaneous
  Country: US (occurrence: US)
  Receive Date: 20200403
  Receipt Date: 20200403
  Transmission Date: 20200713
  Serious: No
  Sender: FDA-Public Use
  Company Number: US-TOLMAR, INC.-19US000581

PATIENT
  Age: 55 Year
  Sex: Male

DRUGS (1)
  1. ELIGARD [Suspect]
     Active Substance: LEUPROLIDE ACETATE
     Indication: BREAST CANCER MALE
     Dosage: 45 MG, EVERY 6 MONYHS
     Route: 058

REACTIONS (3)
  - Off label use [Unknown]
  - Intercepted medication error [None]
  - Syringe issue [None]

NARRATIVE: CASE EVENT DATE: 201901
